FAERS Safety Report 22074233 (Version 1)
Quarter: 2023Q1

REPORT INFORMATION
  Report Type: Report from Study
  Country: CA (occurrence: CA)
  Receive Date: 20230308
  Receipt Date: 20230308
  Transmission Date: 20230418
  Serious: Yes (Other)
  Sender: FDA-Public Use
  Company Number: CA-GLAXOSMITHKLINE-CA2023AMR033892

PATIENT

DRUGS (1)
  1. MEPOLIZUMAB [Suspect]
     Active Substance: MEPOLIZUMAB
     Indication: Eosinophilic granulomatosis with polyangiitis
     Dosage: 300 MG, Z(EVERY 4 WEEKS)
     Route: 058
     Dates: start: 20210218

REACTIONS (3)
  - Device related infection [Unknown]
  - Swelling face [Recovering/Resolving]
  - Facial pain [Recovering/Resolving]
